FAERS Safety Report 16239297 (Version 4)
Quarter: 2019Q3

REPORT INFORMATION
  Report Type: Spontaneous
  Country: US (occurrence: US)
  Receive Date: 20190425
  Receipt Date: 20190711
  Transmission Date: 20191004
  Serious: Yes (Other)
  Sender: FDA-Public Use
  Company Number: US-VERTEX PHARMACEUTICALS-2019-003666

PATIENT
  Sex: Female
  Weight: 54 kg

DRUGS (1)
  1. ORKAMBI [Suspect]
     Active Substance: IVACAFTOR\LUMACAFTOR
     Indication: CYSTIC FIBROSIS
     Dosage: 2 DOSAGE FORM, BID
     Route: 048
     Dates: start: 20180727

REACTIONS (7)
  - Headache [Unknown]
  - Abdominal pain upper [Unknown]
  - Drug interaction [Unknown]
  - Treatment noncompliance [Not Recovered/Not Resolved]
  - Weight increased [Unknown]
  - Infective pulmonary exacerbation of cystic fibrosis [Unknown]
  - Eating disorder [Unknown]
